FAERS Safety Report 7634035-2 (Version None)
Quarter: 2011Q3

REPORT INFORMATION
  Report Type: 
  Country: None (occurrence: None)
  Receive Date: 20110714
  Receipt Date: 20110509
  Transmission Date: 20111222
  Serious: Yes (Life-Threatening, Hospitalization, Other)
  Sender: FDA-Public Use
  Company Number: 2011SP021400

PATIENT
  Sex: Female

DRUGS (1)
  1. INTEGRILIN [Suspect]
     Indication: CORONARY ARTERY BYPASS
     Dosage: IV
     Route: 042
     Dates: start: 20110401, end: 20110507

REACTIONS (1)
  - HAEMORRHAGE [None]
